FAERS Safety Report 21917647 (Version 1)
Quarter: 2023Q1

REPORT INFORMATION
  Report Type: Spontaneous
  Country: GB (occurrence: GB)
  Receive Date: 20230127
  Receipt Date: 20230127
  Transmission Date: 20230418
  Serious: Yes (Death)
  Sender: FDA-Public Use
  Company Number: GB-BAYER-2023A010823

PATIENT
  Sex: Female
  Weight: 82 kg

DRUGS (15)
  1. VENTAVIS [Suspect]
     Active Substance: ILOPROST
     Indication: Product used for unknown indication
     Dosage: 25 DF
     Route: 055
     Dates: start: 20220204
  2. VENTAVIS [Suspect]
     Active Substance: ILOPROST
     Dosage: 17.5 DF, QD
     Route: 055
     Dates: start: 20220203, end: 20220204
  3. VENTAVIS [Suspect]
     Active Substance: ILOPROST
     Dosage: 17.5 DF, QD
     Route: 055
     Dates: start: 20220203, end: 20220204
  4. UPTRAVI [Suspect]
     Active Substance: SELEXIPAG
     Indication: Pulmonary arterial hypertension
     Dosage: 1600 UNK
     Route: 048
     Dates: start: 20211201, end: 20220202
  5. UPTRAVI [Suspect]
     Active Substance: SELEXIPAG
     Dosage: 1200 DF
     Route: 048
     Dates: start: 20210420, end: 20211201
  6. UPTRAVI [Suspect]
     Active Substance: SELEXIPAG
     Dosage: 400 DF
     Route: 065
     Dates: start: 20210309, end: 20210316
  7. UPTRAVI [Suspect]
     Active Substance: SELEXIPAG
     Dosage: 1600 DF, QD
     Route: 048
     Dates: start: 20210414, end: 20210420
  8. UPTRAVI [Suspect]
     Active Substance: SELEXIPAG
     Dosage: 2000 DF, QD
     Route: 048
     Dates: start: 20210406, end: 20210414
  9. SIMVASTATIN [Concomitant]
     Active Substance: SIMVASTATIN
  10. OXYGEN [Concomitant]
     Active Substance: OXYGEN
     Route: 055
  11. BECLOMETHASONE DIPROPIONATE\FORMOTEROL FUMARATE\GLYCOPYRROLATE [Concomitant]
     Active Substance: BECLOMETHASONE DIPROPIONATE\FORMOTEROL FUMARATE\GLYCOPYRROLATE
     Route: 055
  12. ALBUTEROL [Concomitant]
     Active Substance: ALBUTEROL
  13. LANSOPRAZOLE [Concomitant]
     Active Substance: LANSOPRAZOLE
  14. BUMETANIDE [Concomitant]
     Active Substance: BUMETANIDE
  15. SPIRONOLACTONE [Concomitant]
     Active Substance: SPIRONOLACTONE

REACTIONS (1)
  - Death [Fatal]
